FAERS Safety Report 9932864 (Version 1)
Quarter: 2014Q1

REPORT INFORMATION
  Report Type: Spontaneous
  Country: US (occurrence: US)
  Receive Date: 20140228
  Receipt Date: 20140228
  Transmission Date: 20141002
  Serious: No
  Sender: FDA-Public Use
  Company Number: US-GLAXOSMITHKLINE-A1036319A

PATIENT
  Age: 38 Year
  Sex: Female

DRUGS (5)
  1. LAMICTAL [Suspect]
     Indication: EPILEPSY
     Dosage: 250MG TWICE PER DAY
     Route: 048
     Dates: start: 20050801
  2. FLEXERIL [Concomitant]
     Dosage: 10MG AS REQUIRED
     Route: 048
  3. POTASSIUM SUPPLEMENT [Concomitant]
  4. ORTHO NOVUM [Concomitant]
     Indication: CONTRACEPTION
     Route: 048
  5. ATENOLOL [Concomitant]
     Dosage: 50MG AS REQUIRED
     Route: 048

REACTIONS (1)
  - Breath odour [Not Recovered/Not Resolved]
